FAERS Safety Report 22207875 (Version 1)
Quarter: 2023Q2

REPORT INFORMATION
  Report Type: Spontaneous
  Country: US (occurrence: US)
  Receive Date: 20230413
  Receipt Date: 20230413
  Transmission Date: 20230722
  Serious: No
  Sender: FDA-Public Use
  Company Number: US-JNJFOC-20191138552

PATIENT
  Age: 92 Year
  Sex: Male
  Weight: 77.634 kg

DRUGS (1)
  1. IMODIUM A-D [Suspect]
     Active Substance: LOPERAMIDE HYDROCHLORIDE
     Indication: Diarrhoea
     Dosage: HE TOOK ONE WHOLE CAPLET THIS MORNING, 21NOV2019. LATER TODAY HE TOOK A HALF OF A CAPLET AND THEN AN
     Route: 048
     Dates: start: 201911

REACTIONS (2)
  - Drug ineffective [Unknown]
  - Wrong technique in product usage process [Unknown]
